FAERS Safety Report 8048421 (Version 5)
Quarter: 2012Q4

REPORT INFORMATION
  Report Type: 
  Country: US (occurrence: US)
  Receive Date: 20110721
  Receipt Date: 20121219
  Transmission Date: 20130627
  Serious: Yes (Hospitalization, Other)
  Sender: FDA-Public Use
  Company Number: US-ASTRAZENECA-2011SE36199

PATIENT
  Age: 56 Year
  Sex: Female

DRUGS (12)
  1. NEXIUM [Suspect]
     Route: 048
  2. NEXIUM [Suspect]
     Route: 048
  3. NEXIUM [Suspect]
     Dosage: GENERIC
     Route: 048
  4. PRILOSEC OTC [Suspect]
     Route: 048
  5. LEVOTHYROXINE [Concomitant]
     Indication: THYROID DISORDER
  6. METFORMIN [Concomitant]
     Indication: DIABETES MELLITUS
  7. LASIX [Concomitant]
     Indication: OEDEMA
  8. LOVAZA [Concomitant]
     Indication: BLOOD TRIGLYCERIDES ABNORMAL
  9. POTASSIUM [Concomitant]
  10. SIMVASTATIN [Concomitant]
     Indication: BLOOD CHOLESTEROL ABNORMAL
  11. LORTAB [Concomitant]
     Indication: PAIN
  12. AVINZA [Concomitant]
     Indication: PAIN

REACTIONS (17)
  - Spinal fracture [Unknown]
  - Barrett^s oesophagus [Unknown]
  - Road traffic accident [Unknown]
  - Upper limb fracture [Unknown]
  - Dysphonia [Unknown]
  - Disability [Unknown]
  - Amnesia [Unknown]
  - Dyspepsia [Unknown]
  - Dyspnoea [Unknown]
  - Neck pain [Unknown]
  - Adverse event [Unknown]
  - Mental impairment [Unknown]
  - Gastrooesophageal reflux disease [Unknown]
  - Insomnia [Unknown]
  - Drug ineffective [Unknown]
  - Inappropriate schedule of drug administration [Unknown]
  - Drug dose omission [Unknown]
